FAERS Safety Report 5585364-8 (Version None)
Quarter: 2008Q1

REPORT INFORMATION
  Report Type: 
  Country: None (occurrence: None)
  Receive Date: 20080104
  Receipt Date: 20071220
  Transmission Date: 20080703
  Serious: Yes (Other)
  Sender: FDA-Public Use
  Company Number: 20070289

PATIENT
  Age: 25 Year
  Sex: Male

DRUGS (6)
  1. VENOFER [Suspect]
     Indication: ANAEMIA POSTOPERATIVE
     Dosage: 300 MG ONCE INTRAVENOUS
     Route: 042
     Dates: start: 20071021, end: 20071021
  2. AUGMENTIN '250' [Concomitant]
  3. PANTOPRAZOLE SODIUM [Concomitant]
  4. LOVENOX [Concomitant]
  5. MIDAZOLAM HCL [Concomitant]
  6. SUFENTANIL CITRATE [Concomitant]

REACTIONS (4)
  - DISORIENTATION [None]
  - HEMIPARESIS [None]
  - NEPHRITIS [None]
  - RENAL FAILURE ACUTE [None]
